FAERS Safety Report 4902033-5 (Version None)
Quarter: 2006Q1

REPORT INFORMATION
  Report Type: 
  Country: None (occurrence: None)
  Receive Date: 20060202
  Receipt Date: 20060202
  Transmission Date: 20060701
  Serious: Yes (Other)
  Sender: FDA-Public Use
  Company Number: None

PATIENT
  Age: 41 Year
  Sex: Male
  Weight: 95.2554 kg

DRUGS (1)
  1. PAXIL [Suspect]
     Indication: DEPRESSION
     Dosage: 20MG DAILY PO
     Route: 048
     Dates: start: 19960116, end: 20020101

REACTIONS (15)
  - ABASIA [None]
  - ANGER [None]
  - ANXIETY [None]
  - BALANCE DISORDER [None]
  - CRYING [None]
  - DRUG INEFFECTIVE [None]
  - DRUG WITHDRAWAL SYNDROME [None]
  - EMOTIONAL DISORDER [None]
  - FOOD POISONING [None]
  - INFLUENZA LIKE ILLNESS [None]
  - MALAISE [None]
  - MOOD SWINGS [None]
  - SOCIAL AVOIDANT BEHAVIOUR [None]
  - VERTIGO [None]
  - WEIGHT INCREASED [None]
